FAERS Safety Report 15853713 (Version 3)
Quarter: 2019Q2

REPORT INFORMATION
  Report Type: Spontaneous
  Country: US (occurrence: US)
  Receive Date: 20190122
  Receipt Date: 20190523
  Transmission Date: 20190711
  Serious: Yes (Other)
  Sender: FDA-Public Use
  Company Number: US-GLAXOSMITHKLINE-US2019009806

PATIENT
  Sex: Female

DRUGS (1)
  1. NUCALA [Suspect]
     Active Substance: MEPOLIZUMAB
     Indication: PRODUCT USED FOR UNKNOWN INDICATION
     Dosage: UNK(EVERY 28 TO 30 DAYS)
     Route: 058
     Dates: start: 20171031

REACTIONS (8)
  - Upper-airway cough syndrome [Unknown]
  - Wheezing [Recovered/Resolved]
  - Asthma [Recovering/Resolving]
  - Feeling abnormal [Unknown]
  - Urinary tract infection [Unknown]
  - Pneumonia [Recovered/Resolved]
  - Pulmonary congestion [Unknown]
  - Immune system disorder [Unknown]
